FAERS Safety Report 4497906-4 (Version None)
Quarter: 2004Q4

REPORT INFORMATION
  Report Type: 
  Country: None (occurrence: None)
  Receive Date: 20041104
  Receipt Date: 20041022
  Transmission Date: 20050328
  Serious: Yes (Life-Threatening)
  Sender: FDA-Public Use
  Company Number: 2004240557JP

PATIENT
  Age: 66 Year
  Sex: Female

DRUGS (2)
  1. CAMPTOSAR [Suspect]
     Indication: ENDOMETRIAL CANCER
     Dosage: SEE IMAGE
     Route: 041
     Dates: start: 20040802, end: 20040802
  2. MITOMYCIN [Suspect]
     Indication: ENDOMETRIAL CANCER

REACTIONS (2)
  - INTERSTITIAL LUNG DISEASE [None]
  - PYREXIA [None]
